FAERS Safety Report 6883768-4 (Version None)
Quarter: 2010Q3

REPORT INFORMATION
  Report Type: 
  Country: None (occurrence: None)
  Receive Date: 20100729
  Receipt Date: 20100723
  Transmission Date: 20110219
  Serious: Yes (Hospitalization)
  Sender: FDA-Public Use
  Company Number: Z0004254C

PATIENT
  Sex: Male
  Weight: 92 kg

DRUGS (3)
  1. CHLORAMBUCIL [Suspect]
     Route: 048
     Dates: start: 20100330
  2. INSULINA [Concomitant]
     Indication: DIABETES PROPHYLAXIS
     Route: 058
     Dates: start: 20100514
  3. LANTUS [Concomitant]
     Indication: DIABETES PROPHYLAXIS
     Route: 058
     Dates: start: 20100514

REACTIONS (1)
  - ANAEMIA HAEMOLYTIC AUTOIMMUNE [None]
